FAERS Safety Report 23084896 (Version 1)
Quarter: 2023Q4

REPORT INFORMATION
  Report Type: Spontaneous
  Country: US (occurrence: None)
  Receive Date: 20231019
  Receipt Date: 20231019
  Transmission Date: 20240110
  Serious: Yes (Hospitalization)
  Sender: FDA-Public Use
  Company Number: None

PATIENT
  Age: 41 Year
  Sex: Male

DRUGS (5)
  1. CLOZAPINE [Suspect]
     Active Substance: CLOZAPINE
     Dosage: FREQUENCY : DAILY;?
     Route: 048
     Dates: start: 20230203, end: 20230205
  2. RISPERIDONE [Suspect]
     Active Substance: RISPERIDONE
  3. INVEGA SUSTENNA [Suspect]
     Active Substance: PALIPERIDONE PALMITATE
  4. HALOPERIDOL [Suspect]
     Active Substance: HALOPERIDOL
  5. ARIPIPRAZOLE [Suspect]
     Active Substance: ARIPIPRAZOLE

REACTIONS (3)
  - Treatment noncompliance [None]
  - Pyrexia [None]
  - Schizophrenia [None]

NARRATIVE: CASE EVENT DATE: 20230206
